FAERS Safety Report 4954203-8 (Version None)
Quarter: 2006Q1

REPORT INFORMATION
  Report Type: 
  Country: None (occurrence: None)
  Receive Date: 20060327
  Receipt Date: 20051005
  Transmission Date: 20060701
  Serious: Yes (Death, Hospitalization)
  Sender: FDA-Public Use
  Company Number: US-MERCK-0510USA03475

PATIENT
  Age: 87 Year
  Sex: Female
  Weight: 59 kg

DRUGS (12)
  1. VIOXX [Suspect]
     Indication: ARTHRITIS
     Route: 048
     Dates: start: 19991014
  2. VIOXX [Suspect]
     Route: 048
  3. VIOXX [Suspect]
     Route: 048
  4. VIOXX [Suspect]
     Indication: BACK PAIN
     Route: 048
     Dates: start: 19991014
  5. VIOXX [Suspect]
     Route: 048
  6. VIOXX [Suspect]
     Route: 048
  7. PAXIL [Concomitant]
     Route: 065
  8. METOPROLOL [Concomitant]
     Route: 065
  9. XANAX [Concomitant]
     Route: 065
  10. ZANTAC [Concomitant]
     Route: 065
  11. NORVASC [Concomitant]
     Route: 065
  12. DITROPAN [Concomitant]
     Route: 065

REACTIONS (26)
  - ANAEMIA [None]
  - ANXIETY [None]
  - ASTHENIA [None]
  - ATRIAL FIBRILLATION [None]
  - BRADYCARDIA [None]
  - CARDIAC FAILURE [None]
  - CARDIAC FAILURE CONGESTIVE [None]
  - CARDIOVASCULAR DISORDER [None]
  - CORONARY ARTERY DISEASE [None]
  - DEATH [None]
  - DEPRESSION [None]
  - DIVERTICULUM [None]
  - ECCHYMOSIS [None]
  - FALL [None]
  - HYPERTENSION [None]
  - HYPONATRAEMIA [None]
  - HYPOXIA [None]
  - LOBAR PNEUMONIA [None]
  - MYOCARDIAL INFARCTION [None]
  - OSTEOARTHRITIS [None]
  - PEPTIC ULCER [None]
  - PNEUMONIA [None]
  - POLLAKIURIA [None]
  - PRURITUS [None]
  - UPPER RESPIRATORY TRACT INFECTION [None]
  - URINARY TRACT INFECTION [None]
